FAERS Safety Report 16021022 (Version 1)
Quarter: 2019Q1

REPORT INFORMATION
  Report Type: Spontaneous
  Country: US (occurrence: US)
  Receive Date: 20190301
  Receipt Date: 20190301
  Transmission Date: 20190418
  Serious: No
  Sender: FDA-Public Use
  Company Number: US-PFIZER INC-2019078138

PATIENT

DRUGS (1)
  1. SOLU-MEDROL [Suspect]
     Active Substance: METHYLPREDNISOLONE SODIUM SUCCINATE
     Indication: FOOD ALLERGY
     Dosage: UNK
     Route: 030

REACTIONS (3)
  - Product administration error [Unknown]
  - Movement disorder [Recovering/Resolving]
  - Injection site pain [Recovering/Resolving]
